FAERS Safety Report 7467433-0 (Version None)
Quarter: 2011Q2

REPORT INFORMATION
  Report Type: 
  Country: None (occurrence: None)
  Receive Date: 20110509
  Receipt Date: 20110103
  Transmission Date: 20111010
  Serious: No
  Sender: FDA-Public Use
  Company Number: US-ALEXION-A201100005

PATIENT
  Sex: Male

DRUGS (3)
  1. SOLIRIS [Suspect]
     Indication: PAROXYSMAL NOCTURNAL HAEMOGLOBINURIA
     Dosage: UNK
     Route: 042
  2. DIOVAN [Concomitant]
     Dosage: UNK
  3. COREG [Concomitant]
     Indication: HYPERTENSION
     Dosage: UNK

REACTIONS (7)
  - HAEMATOCRIT DECREASED [None]
  - HAEMOGLOBIN DECREASED [None]
  - RETICULOCYTE COUNT ABNORMAL [None]
  - HAEMOLYSIS [None]
  - INFLUENZA [None]
  - RHINORRHOEA [None]
  - FULL BLOOD COUNT DECREASED [None]
